FAERS Safety Report 9257130 (Version 1)
Quarter: 2013Q1

REPORT INFORMATION
  Report Type: Spontaneous
  Country: US (occurrence: None)
  Receive Date: 20121212
  Receipt Date: 20121212
  Transmission Date: 20140127
  Serious: No
  Sender: FDA-Public Use
  Company Number: 1211USA007201

PATIENT
  Age: 57 Year
  Sex: Female

DRUGS (3)
  1. VICTRELIS [Suspect]
     Indication: HEPATITIS C
     Route: 048
     Dates: start: 20120525
  2. PEG-INTRON [Suspect]
     Indication: HEPATITIS C
     Dates: start: 20120525
  3. REBETOL [Suspect]
     Indication: HEPATITIS C
     Route: 048
     Dates: start: 20120525

REACTIONS (1)
  - Asthenia [None]
